FAERS Safety Report 5849674-9 (Version None)
Quarter: 2008Q3

REPORT INFORMATION
  Report Type: 
  Country: None (occurrence: None)
  Receive Date: 20080818
  Receipt Date: 20080818
  Transmission Date: 20090109
  Serious: No
  Sender: FDA-Public Use
  Company Number: None

PATIENT
  Age: 34 Year
  Sex: Male
  Weight: 72.5755 kg

DRUGS (1)
  1. MIRENA [Suspect]
     Indication: CONTRACEPTION
     Dates: start: 20060101, end: 20080801

REACTIONS (7)
  - BACK PAIN [None]
  - DEPRESSION [None]
  - DIZZINESS [None]
  - MENORRHAGIA [None]
  - METRORRHAGIA [None]
  - PELVIC PAIN [None]
  - VISION BLURRED [None]
